FAERS Safety Report 14416646 (Version 1)
Quarter: 2018Q1

REPORT INFORMATION
  Report Type: Spontaneous
  Country: US (occurrence: US)
  Receive Date: 20180122
  Receipt Date: 20180122
  Transmission Date: 20180509
  Serious: Yes (Life-Threatening, Other)
  Sender: FDA-Public Use
  Company Number: US-ACCORD-062791

PATIENT
  Age: 3 Year
  Sex: Female

DRUGS (7)
  1. CARBOPLATIN. [Suspect]
     Active Substance: CARBOPLATIN
     Indication: NEUROBLASTOMA
     Dosage: MYELOABLATIVE CHEMOTHERAPY
  2. CYCLOPHOSPHAMIDE/CYCLOPHOSPHAMIDE MONOHYDRATE [Suspect]
     Active Substance: CYCLOPHOSPHAMIDE
     Indication: NEUROBLASTOMA
     Dosage: INDUCTION CHEMOTHERAPY?ORAL MAINTENANCE THERAPY
     Route: 048
  3. IFOSFAMIDE. [Suspect]
     Active Substance: IFOSFAMIDE
     Indication: NEUROBLASTOMA
  4. ETOPOSIDE. [Suspect]
     Active Substance: ETOPOSIDE
     Indication: NEUROBLASTOMA
     Dosage: INDUCTION CHEMOTHERAPY ?1352 MG/M2 AS MYELOABLATIVE CHEMOTHERAPY
  5. DOXORUBICIN [Suspect]
     Active Substance: DOXORUBICIN
     Indication: NEUROBLASTOMA
     Dosage: INDUCTION CHEMOTHERAPY
  6. CISPLATIN. [Suspect]
     Active Substance: CISPLATIN
     Indication: METASTASES TO BONE
     Dosage: INDUCTION CHEMOTHERAPY
  7. MELPHALAN. [Suspect]
     Active Substance: MELPHALAN
     Indication: NEUROBLASTOMA
     Dosage: MYELOABLATIVE CHEMOTHERAPY

REACTIONS (3)
  - Off label use [Unknown]
  - Myelodysplastic syndrome [Unknown]
  - Acute myeloid leukaemia [Unknown]
